FAERS Safety Report 8355474-0 (Version None)
Quarter: 2012Q2

REPORT INFORMATION
  Report Type: 
  Country: None (occurrence: None)
  Receive Date: 20120512
  Receipt Date: 20120501
  Transmission Date: 20120825
  Serious: Yes (Hospitalization, Other)
  Sender: FDA-Public Use
  Company Number: US-ELI_LILLY_AND_COMPANY-US201006001753

PATIENT
  Sex: Female

DRUGS (32)
  1. FORTEO [Suspect]
     Dosage: 20 UG, QD
  2. REMERON [Concomitant]
  3. RESTASIS [Concomitant]
  4. FORTEO [Suspect]
     Dosage: 20 UG, DAILY (1/D)
  5. ATIVAN [Concomitant]
  6. LYRICA [Concomitant]
     Dosage: UNK, PRN
  7. MULTI-VITAMIN [Concomitant]
  8. FORTEO [Suspect]
     Indication: OSTEOPOROSIS
     Dosage: 20 UG, DAILY (1/D)
     Route: 058
     Dates: start: 20100505
  9. ATENOLOL [Concomitant]
     Dosage: 50 MG, QD
  10. DILANTIN [Concomitant]
  11. FOLIC ACID [Concomitant]
     Dosage: 400 MG, QD
  12. ICAPS [Concomitant]
  13. FORTEO [Suspect]
     Dosage: 20 UG, QD
  14. RECLAST [Concomitant]
  15. LORAZEPAM [Concomitant]
     Dosage: 1 MG, EACH EVENING
  16. MEGESTROL ACETATE [Concomitant]
  17. IRON [Concomitant]
  18. PAPAYA ENZYMES [Concomitant]
     Indication: ABDOMINAL DISCOMFORT
     Dosage: UNK, PRN
  19. FORTEO [Suspect]
     Dosage: 20 UG, QD
  20. BUTALBITAL ACETAMINOPHEN AND CAFFEINE [Concomitant]
  21. ZOLPIDEM [Concomitant]
     Dosage: 10 MG, UNK
  22. ASCORBIC ACID [Concomitant]
  23. CALCITRATE [Concomitant]
     Dosage: 1500 MG, QD
  24. FORTEO [Suspect]
     Dosage: 20 UG, QD
  25. FOSAMAX [Concomitant]
  26. FORTEO [Suspect]
     Dosage: 20 UG, DAILY (1/D)
  27. CLINDAMYCIN [Concomitant]
  28. ASPIRIN [Concomitant]
     Dosage: 81 MG, UNK
  29. HYDROCODONE BITARTRATE [Concomitant]
  30. CALCIUM +D                         /00188401/ [Concomitant]
     Dosage: 1500 MG, UNK
  31. VITAMIN B-12 [Concomitant]
     Dosage: UNK, WEEKLY (1/W)
  32. ACIDOPHILUS [Concomitant]

REACTIONS (17)
  - LOSS OF CONSCIOUSNESS [None]
  - FALL [None]
  - DIZZINESS [None]
  - COUGH [None]
  - HOSPITALISATION [None]
  - CONCUSSION [None]
  - WRIST FRACTURE [None]
  - HEADACHE [None]
  - DYSPHONIA [None]
  - NIGHT SWEATS [None]
  - JOINT INJURY [None]
  - SOMNOLENCE [None]
  - CONTUSION [None]
  - NASAL CONGESTION [None]
  - HYPERHIDROSIS [None]
  - INJECTION SITE RASH [None]
  - DEPRESSION [None]
